FAERS Safety Report 9271057 (Version 2)
Quarter: 2013Q4

REPORT INFORMATION
  Report Type: Spontaneous
  Country: FR (occurrence: FR)
  Receive Date: 20130506
  Receipt Date: 20131022
  Transmission Date: 20140711
  Serious: Yes (Hospitalization)
  Sender: FDA-Public Use
  Company Number: FR-ROCHE-1221167

PATIENT
  Age: 40 Year
  Sex: Male

DRUGS (5)
  1. ZELBORAF [Suspect]
     Indication: SARCOMA
     Route: 048
     Dates: start: 20121119, end: 201304
  2. ZELBORAF [Suspect]
     Route: 065
     Dates: start: 20130220
  3. KEPPRA [Concomitant]
     Indication: STATUS EPILEPTICUS
  4. RIVOTRIL [Concomitant]
     Indication: SEDATION
     Route: 042
  5. MORPHINE [Concomitant]

REACTIONS (1)
  - Cerebellar haematoma [Not Recovered/Not Resolved]
